FAERS Safety Report 5326443-X (Version None)
Quarter: 2007Q2

REPORT INFORMATION
  Report Type: 
  Country: None (occurrence: None)
  Receive Date: 20070516
  Receipt Date: 20070506
  Transmission Date: 20071010
  Serious: Yes (Other)
  Sender: FDA-Public Use
  Company Number: US-JNJFOC-20070404087

PATIENT
  Sex: Female

DRUGS (3)
  1. INVEGA [Suspect]
     Indication: SCHIZOPHRENIA, PARANOID TYPE
     Route: 048
  2. DEPAKOTE [Concomitant]
     Route: 048
  3. DESERIL [Concomitant]
     Route: 048

REACTIONS (3)
  - AGITATION [None]
  - EXTRAPYRAMIDAL DISORDER [None]
  - TACHYCARDIA [None]
